FAERS Safety Report 9649059 (Version 1)
Quarter: 2013Q4

REPORT INFORMATION
  Report Type: Report from Study
  Country: LB (occurrence: LB)
  Receive Date: 20131028
  Receipt Date: 20131028
  Transmission Date: 20140711
  Serious: Yes (Hospitalization)
  Sender: FDA-Public Use
  Company Number: LB-SA-2013SA107249

PATIENT
  Age: 74 Year
  Sex: Male

DRUGS (7)
  1. LANTUS SOLOSTAR [Suspect]
     Indication: DIABETES MELLITUS
     Dosage: DOSE:12 UNIT(S)
     Route: 058
  2. SOLOSTAR [Concomitant]
     Route: 058
  3. APIDRA SOLOSTAR [Concomitant]
     Indication: DIABETES MELLITUS
     Dosage: DOSE:6 UNIT(S)
     Route: 058
  4. GLUCOPHAGE [Concomitant]
     Indication: DIABETES MELLITUS
     Route: 048
  5. APROVEL [Concomitant]
     Route: 048
  6. CONCOR [Concomitant]
     Route: 048
  7. SILODOSIN [Concomitant]
     Route: 048

REACTIONS (1)
  - Cardiac disorder [Recovered/Resolved]
